FAERS Safety Report 24532722 (Version 2)
Quarter: 2024Q4

REPORT INFORMATION
  Report Type: Spontaneous
  Country: FR (occurrence: FR)
  Receive Date: 20241022
  Receipt Date: 20241219
  Transmission Date: 20250114
  Serious: Yes (Hospitalization)
  Sender: RANBAXY
  Company Number: FR-SUN PHARMACEUTICAL INDUSTRIES LTD-2024RR-474265

PATIENT
  Age: 73 Year
  Sex: Male
  Weight: 68 kg

DRUGS (18)
  1. LENALIDOMIDE [Suspect]
     Active Substance: LENALIDOMIDE
     Indication: Plasma cell myeloma
     Dosage: 25 MILLIGRAM, DAILY
     Route: 048
     Dates: start: 20240709, end: 20240722
  2. BORTEZOMIB [Suspect]
     Active Substance: BORTEZOMIB
     Indication: Plasma cell myeloma
     Dosage: 2.21 MILLIGRAM, TOTAL 1
     Route: 058
     Dates: start: 20240716, end: 20240716
  3. BORTEZOMIB [Suspect]
     Active Substance: BORTEZOMIB
     Dosage: 2.21 MILLIGRAM, TOTAL 1
     Route: 065
     Dates: start: 20240712, end: 20240712
  4. BORTEZOMIB [Suspect]
     Active Substance: BORTEZOMIB
     Dosage: 2.21 MILLIGRAM, TOTAL 1
     Route: 065
     Dates: start: 20240719, end: 20240719
  5. BORTEZOMIB [Suspect]
     Active Substance: BORTEZOMIB
     Dosage: 2.21 MILLIGRAM, TOTAL 1
     Route: 065
     Dates: start: 20240709, end: 20240709
  6. PIPERACILLIN SODIUM\TAZOBACTAM SODIUM [Suspect]
     Active Substance: PIPERACILLIN SODIUM\TAZOBACTAM SODIUM
     Indication: Sepsis
     Dosage: 12 GRAM, DAILY
     Route: 040
     Dates: start: 20240722, end: 20240725
  7. POLARAMINE [Suspect]
     Active Substance: DEXCHLORPHENIRAMINE MALEATE
     Indication: Prophylaxis
     Dosage: 4 MILLIGRAM, TOTAL 1
     Route: 048
     Dates: start: 20240709, end: 20240709
  8. POLARAMINE [Suspect]
     Active Substance: DEXCHLORPHENIRAMINE MALEATE
     Dosage: 4 MILLIGRAM, TOTAL 1
     Route: 048
     Dates: start: 20240716, end: 20240716
  9. SPIRAMYCIN [Suspect]
     Active Substance: SPIRAMYCIN
     Indication: Sepsis
     Dosage: 1 DOSAGE FORM, DAILY
     Route: 040
     Dates: start: 20240722, end: 20240723
  10. LOVENOX [Suspect]
     Active Substance: ENOXAPARIN SODIUM
     Indication: Prophylaxis
     Dosage: 1 DOSAGE FORM, DAILY
     Route: 058
     Dates: start: 20240704, end: 20240722
  11. DARZALEX [Suspect]
     Active Substance: DARATUMUMAB
     Indication: Plasma cell myeloma
     Dosage: 1800 MILLIGRAM, TOTAL 1
     Route: 058
     Dates: start: 20240716, end: 20240716
  12. DARZALEX [Suspect]
     Active Substance: DARATUMUMAB
     Dosage: 1800 MILLIGRAM, TOTAL 1
     Route: 065
     Dates: start: 20240709, end: 20240709
  13. DEXAMETHASONE [Suspect]
     Active Substance: DEXAMETHASONE
     Indication: Plasma cell myeloma
     Dosage: 20 MILLIGRAM, DAILY
     Route: 048
     Dates: start: 20240709, end: 20240720
  14. SULFAMETHOXAZOLE\TRIMETHOPRIM [Concomitant]
     Active Substance: SULFAMETHOXAZOLE\TRIMETHOPRIM
     Indication: Prophylaxis
     Dosage: 3 DOSAGE FORM, 1/WEEK
     Route: 048
     Dates: start: 20240704
  15. VALACYCLOVIR [Concomitant]
     Active Substance: VALACYCLOVIR HYDROCHLORIDE
     Indication: Prophylaxis
     Dosage: 1000 MILLIGRAM, DAILY
     Route: 048
     Dates: start: 20240704
  16. LEUCOVORIN CALCIUM [Concomitant]
     Active Substance: LEUCOVORIN CALCIUM
     Indication: Prophylaxis
     Dosage: 25 MILLIGRAM, 1/WEEK
     Route: 048
     Dates: start: 20240704
  17. ACETAMINOPHEN [Concomitant]
     Active Substance: ACETAMINOPHEN
     Indication: Prophylaxis
     Dosage: 1000 MILLIGRAM, DAILY
     Route: 048
     Dates: start: 20240709, end: 20240709
  18. ACETAMINOPHEN [Concomitant]
     Active Substance: ACETAMINOPHEN
     Route: 048
     Dates: start: 20240716, end: 20240716

REACTIONS (2)
  - Rash [Recovering/Resolving]
  - Hypotension [Recovering/Resolving]

NARRATIVE: CASE EVENT DATE: 20240722
